FAERS Safety Report 9318741 (Version 4)
Quarter: 2013Q3

REPORT INFORMATION
  Report Type: Report from Study
  Country: FR (occurrence: FR)
  Receive Date: 20130530
  Receipt Date: 20130716
  Transmission Date: 20140515
  Serious: Yes (Hospitalization)
  Sender: FDA-Public Use
  Company Number: FR-ELI_LILLY_AND_COMPANY-FR201305006119

PATIENT
  Age: 58 Year
  Sex: Male
  Weight: 80 kg

DRUGS (7)
  1. PEMETREXED [Suspect]
     Indication: NON-SMALL CELL LUNG CANCER
     Dosage: 500 MG/M2, EVERY 21 DAYS
     Route: 042
     Dates: start: 20120724
  2. DEXAMETHASONE [Concomitant]
     Indication: PREMEDICATION
     Dosage: UNK
     Dates: start: 20120904, end: 201302
  3. NEULASTA [Concomitant]
     Indication: PROPHYLAXIS
     Dosage: UNK
     Dates: start: 20120906, end: 20120906
  4. ISENTRESS [Concomitant]
     Indication: HIV INFECTION
     Dosage: 400 MG, UNK
     Dates: start: 20120723
  5. KIVEXA [Concomitant]
     Indication: HIV INFECTION
     Dosage: 600 MG, UNK
     Dates: start: 20120723
  6. VALACICLOVIR [Concomitant]
     Indication: HIV INFECTION
     Dosage: 500 MG, UNK
     Dates: start: 20120723
  7. CRESTOR [Concomitant]
     Indication: HYPERCHOLESTEROLAEMIA
     Dosage: UNK

REACTIONS (1)
  - Pancytopenia [Recovered/Resolved]
